FAERS Safety Report 10268673 (Version 1)
Quarter: 2014Q2

REPORT INFORMATION
  Report Type: Spontaneous
  Country: IN (occurrence: IN)
  Receive Date: 20140630
  Receipt Date: 20140630
  Transmission Date: 20141212
  Serious: Yes (Hospitalization, Other)
  Sender: FDA-Public Use
  Company Number: IN-NOVEN-14IN009798

PATIENT
  Age: 33 Year
  Sex: Male

DRUGS (1)
  1. LITHIUM CARBONATE [Suspect]
     Indication: BIPOLAR DISORDER
     Dosage: 1200 MG, QD
     Route: 048

REACTIONS (2)
  - Demyelination [Recovered/Resolved]
  - Extrapyramidal disorder [Recovered/Resolved]
